FAERS Safety Report 9349841 (Version 1)
Quarter: 2013Q2

REPORT INFORMATION
  Report Type: Spontaneous
  Country: US (occurrence: None)
  Receive Date: 20130611
  Receipt Date: 20130611
  Transmission Date: 20140414
  Serious: No
  Sender: FDA-Public Use
  Company Number: 2013-00102

PATIENT
  Age: 66 Year
  Sex: Male
  Weight: 81.65 kg

DRUGS (5)
  1. ZICAM COLD REMEDY RAPIDMELTS [Suspect]
     Indication: NASOPHARYNGITIS
     Route: 048
     Dates: start: 20120920, end: 20120926
  2. NASONEX [Concomitant]
  3. PRAVASTATIN [Concomitant]
  4. LUNESTA [Concomitant]
  5. PAXIL [Concomitant]

REACTIONS (3)
  - Anosmia [None]
  - Dysgeusia [None]
  - Dysgeusia [None]
